FAERS Safety Report 23203331 (Version 2)
Quarter: 2023Q4

REPORT INFORMATION
  Report Type: Report from Study
  Country: HU (occurrence: HU)
  Receive Date: 20231120
  Receipt Date: 20231201
  Transmission Date: 20240109
  Serious: Yes (Death, Other)
  Sender: FDA-Public Use
  Company Number: HU-002147023-NVSC2022HU304444

PATIENT

DRUGS (28)
  1. DICLOFENAC POTASSIUM [Suspect]
     Active Substance: DICLOFENAC POTASSIUM
     Indication: Product used for unknown indication
     Dosage: 50 MG, QD
     Route: 065
     Dates: start: 20210803, end: 20210816
  2. TRAMETINIB [Suspect]
     Active Substance: TRAMETINIB
     Indication: Juvenile chronic myelomonocytic leukaemia
     Dosage: 0.5 MG, BID
     Route: 048
     Dates: start: 20210427, end: 20210510
  3. TRAMETINIB [Suspect]
     Active Substance: TRAMETINIB
     Dosage: 0.25 MG, BID
     Route: 048
     Dates: start: 20210511, end: 20220208
  4. AMOXICILLIN [Concomitant]
     Active Substance: AMOXICILLIN
     Indication: Product used for unknown indication
     Dosage: 500 MG, TID
     Route: 048
  5. ACYCLOVIR [Concomitant]
     Active Substance: ACYCLOVIR
     Indication: Product used for unknown indication
     Dosage: 400 MG, TID (3X)
     Route: 048
     Dates: start: 20211005
  6. ACYCLOVIR [Concomitant]
     Active Substance: ACYCLOVIR
     Dosage: 400 MG, QD
     Route: 048
  7. PANTOPRAZOLE [Concomitant]
     Active Substance: PANTOPRAZOLE
     Indication: Product used for unknown indication
     Dosage: 40 MG, QD (1X)
     Route: 048
  8. VITAMIN D3 [Concomitant]
     Active Substance: CHOLECALCIFEROL
     Indication: Product used for unknown indication
     Dosage: 1000 IU, BID (2X)
     Route: 048
  9. POTASSIUM CHLORIDE [Concomitant]
     Active Substance: POTASSIUM CHLORIDE
     Indication: Product used for unknown indication
     Dosage: 1 DF, QD(1X)
     Route: 048
     Dates: start: 20210804
  10. URSODIOL [Concomitant]
     Active Substance: URSODIOL
     Indication: Product used for unknown indication
     Dosage: 1 DF, QD (1X)
     Route: 048
  11. ONDANSETRON HYDROCHLORIDE [Concomitant]
     Active Substance: ONDANSETRON HYDROCHLORIDE
     Indication: Product used for unknown indication
     Dosage: UNK PRN (IF NEEDED)
     Route: 065
  12. HYDROXYUREA [Concomitant]
     Active Substance: HYDROXYUREA
     Indication: Product used for unknown indication
     Dosage: 500 MG, BID  (2X)
     Route: 048
     Dates: start: 20210518, end: 20210921
  13. DALACIN [Concomitant]
     Indication: Product used for unknown indication
     Dosage: 300 MG, QID (4X)
     Route: 065
     Dates: start: 20210803, end: 20210816
  14. DALACIN [Concomitant]
     Dosage: 300 MG, QID (4X)
     Route: 065
     Dates: start: 20220111, end: 20220118
  15. AUGMENTIN [Concomitant]
     Active Substance: AMOXICILLIN\CLAVULANATE POTASSIUM
     Indication: Product used for unknown indication
     Dosage: 1 DF, BID (2X)
     Route: 065
     Dates: start: 20210816, end: 20210907
  16. AUGMENTIN [Concomitant]
     Active Substance: AMOXICILLIN\CLAVULANATE POTASSIUM
     Dosage: 1 DF, BID (2X)
     Route: 065
     Dates: start: 20210927, end: 20211005
  17. AUGMENTIN [Concomitant]
     Active Substance: AMOXICILLIN\CLAVULANATE POTASSIUM
     Dosage: 1 DF, BID (2X)
     Route: 065
     Dates: start: 20211214, end: 20211228
  18. AUGMENTIN [Concomitant]
     Active Substance: AMOXICILLIN\CLAVULANATE POTASSIUM
     Dosage: 1 DF, BID (2X)
     Route: 065
     Dates: start: 20220118
  19. DEXAMETHASONE [Concomitant]
     Active Substance: DEXAMETHASONE
     Indication: Product used for unknown indication
     Dosage: 4 MG, QD (1X)
     Route: 065
     Dates: start: 20211012
  20. DEXAMETHASONE [Concomitant]
     Active Substance: DEXAMETHASONE
     Dosage: 4 MG, QD (1X)
     Route: 065
     Dates: end: 20220216
  21. VANCOMYCIN [Concomitant]
     Active Substance: VANCOMYCIN
     Indication: Product used for unknown indication
     Dosage: 125 MG, QID (4X)
     Route: 065
     Dates: start: 20211116, end: 20211214
  22. FLUCONAZOLE [Concomitant]
     Active Substance: FLUCONAZOLE
     Indication: Product used for unknown indication
     Dosage: 100 MG, BID (2X)
     Route: 065
     Dates: start: 20211130
  23. TRAMADOL [Concomitant]
     Active Substance: TRAMADOL\TRAMADOL HYDROCHLORIDE
     Indication: Product used for unknown indication
     Dosage: 50 MG
     Route: 048
     Dates: start: 20220215, end: 20220216
  24. FENTANYL [Concomitant]
     Active Substance: FENTANYL\FENTANYL CITRATE
     Indication: Product used for unknown indication
     Dosage: 25 UG (PER 3 DAYS)
     Route: 065
     Dates: start: 20220216
  25. LACTASE [Concomitant]
     Active Substance: LACTASE
     Indication: Product used for unknown indication
     Dosage: UNK PRN (IF NEEDED)
     Route: 065
  26. TRAMADOL HYDROCHLORIDE [Concomitant]
     Active Substance: TRAMADOL HYDROCHLORIDE
     Indication: Product used for unknown indication
     Dosage: 100 MG/ML, PRN (DROP, IF NEEDED)
     Route: 048
  27. AMINOPHENAZONE [Concomitant]
     Active Substance: AMINOPHENAZONE
     Indication: Product used for unknown indication
     Dosage: 3 DF PRN (MAX. 3 TABLETS, IF NEEDED)
     Route: 048
  28. LACTULOSE [Concomitant]
     Active Substance: LACTULOSE
     Indication: Product used for unknown indication
     Dosage: UNK PRN (SUSPENSION, IF NEEDED)
     Route: 065

REACTIONS (2)
  - Juvenile chronic myelomonocytic leukaemia [Fatal]
  - Malignant neoplasm progression [Fatal]
